FAERS Safety Report 14577685 (Version 2)
Quarter: 2018Q1

REPORT INFORMATION
  Report Type: Spontaneous
  Country: TR (occurrence: TR)
  Receive Date: 20180227
  Receipt Date: 20180316
  Transmission Date: 20180509
  Serious: Yes (Death, Other)
  Sender: FDA-Public Use
  Company Number: TR-R-PHARM US LLC-2018RPM00005

PATIENT
  Sex: Female

DRUGS (3)
  1. UNSPECIFIED ANTIEMETICS [Concomitant]
  2. IXEMPRA [Suspect]
     Active Substance: IXABEPILONE
     Indication: BREAST CANCER METASTATIC
     Dosage: UNK
     Dates: start: 20171213, end: 2018
  3. UNSPECIFIED GASTROPROTECTIVES [Concomitant]

REACTIONS (2)
  - Death [Fatal]
  - Pancreatitis [Fatal]

NARRATIVE: CASE EVENT DATE: 20180202
